FAERS Safety Report 12220368 (Version 1)
Quarter: 2016Q1

REPORT INFORMATION
  Report Type: Spontaneous
  Country: US (occurrence: None)
  Receive Date: 20160329
  Receipt Date: 20160329
  Transmission Date: 20160526
  Serious: Yes (Hospitalization)
  Sender: FDA-Public Use
  Company Number: None

PATIENT
  Age: 70 Year
  Sex: Male
  Weight: 102.7 kg

DRUGS (1)
  1. WARFARIN [Suspect]
     Active Substance: WARFARIN
     Indication: ATRIAL FIBRILLATION
     Dosage: MG EVERY DAY PO
     Route: 048

REACTIONS (4)
  - Ischaemic stroke [None]
  - Cardiac failure congestive [None]
  - International normalised ratio increased [None]
  - Haemorrhage intracranial [None]

NARRATIVE: CASE EVENT DATE: 20160308
